FAERS Safety Report 9796136 (Version 6)
Quarter: 2014Q3

REPORT INFORMATION
  Report Type: Report from Study
  Country: US (occurrence: US)
  Receive Date: 20140103
  Receipt Date: 20140811
  Transmission Date: 20150326
  Serious: Yes (Hospitalization)
  Sender: FDA-Public Use
  Company Number: US-ACTELION-A-US2013-92994

PATIENT
  Age: 55 Year
  Sex: Male

DRUGS (5)
  1. TYVASO [Concomitant]
     Active Substance: TREPROSTINIL
  2. VELETRI [Suspect]
     Active Substance: EPOPROSTENOL
     Indication: PULMONARY ARTERIAL HYPERTENSION
     Dosage: 9.0 NG/KG, PER MIN
     Route: 042
     Dates: start: 201310
  3. SILDENAFIL [Concomitant]
     Active Substance: SILDENAFIL
  4. TRACLEER [Concomitant]
     Active Substance: BOSENTAN\BOSENTAN MONOHYDRATE
     Indication: PULMONARY ARTERIAL HYPERTENSION
     Dosage: UNK
     Route: 048
     Dates: start: 200411
  5. VELETRI [Suspect]
     Active Substance: EPOPROSTENOL
     Dosage: 8 UNK, UNK
     Route: 042
     Dates: start: 20131108

REACTIONS (8)
  - Cardiac failure [Not Recovered/Not Resolved]
  - Varicose vein [Not Recovered/Not Resolved]
  - Condition aggravated [Not Recovered/Not Resolved]
  - Hypoxia [Recovering/Resolving]
  - Fluid retention [Recovering/Resolving]
  - Atrial fibrillation [Unknown]
  - Heart rate irregular [Not Recovered/Not Resolved]
  - Generalised oedema [Not Recovered/Not Resolved]

NARRATIVE: CASE EVENT DATE: 20140115
